FAERS Safety Report 10008972 (Version 1)
Quarter: 2014Q1

REPORT INFORMATION
  Report Type: Spontaneous
  Country: US (occurrence: US)
  Receive Date: 20140313
  Receipt Date: 20140313
  Transmission Date: 20141002
  Serious: No
  Sender: FDA-Public Use
  Company Number: US-INCYTE CORPORATION-2012IN000981

PATIENT
  Age: 71 Year
  Sex: Male

DRUGS (4)
  1. JAKAFI [Suspect]
     Indication: MYELOFIBROSIS
     Dosage: 15 MG, BID
     Route: 048
     Dates: start: 20120502
  2. PAXIL [Concomitant]
  3. PANTOPRAZOLE [Concomitant]
  4. KEPRA [Concomitant]

REACTIONS (3)
  - Personality change [Unknown]
  - Contusion [Unknown]
  - Increased tendency to bruise [Unknown]
